FAERS Safety Report 8829467 (Version 2)
Quarter: 2014Q3

REPORT INFORMATION
  Report Type: Report from Study
  Country: US (occurrence: US)
  Receive Date: 20121008
  Receipt Date: 20140911
  Transmission Date: 20150326
  Serious: Yes (Hospitalization, Other)
  Sender: FDA-Public Use
  Company Number: US-ROCHE-1131306

PATIENT
  Sex: Male

DRUGS (14)
  1. CYCLOPHOSPHAMIDE. [Concomitant]
     Active Substance: CYCLOPHOSPHAMIDE
  2. PREDNISOLONE. [Concomitant]
     Active Substance: PREDNISOLONE
  3. VINCRISTINE [Concomitant]
     Active Substance: VINCRISTINE
  4. TYLENOL [Concomitant]
     Active Substance: ACETAMINOPHEN
  5. K-DUR [Concomitant]
     Active Substance: POTASSIUM CHLORIDE
     Route: 065
  6. PROPOFOL. [Concomitant]
     Active Substance: PROPOFOL
  7. XANAX [Concomitant]
     Active Substance: ALPRAZOLAM
  8. COREG [Concomitant]
     Active Substance: CARVEDILOL
     Route: 065
  9. RITUXAN [Suspect]
     Active Substance: RITUXIMAB
     Indication: NON-HODGKIN^S LYMPHOMA
     Dosage: VIAL SIZ 100MG
     Route: 042
     Dates: start: 20011107
  10. HALOPERIDOL. [Concomitant]
     Active Substance: HALOPERIDOL
  11. LEVAQUIN [Concomitant]
     Active Substance: LEVOFLOXACIN
  12. BENADRYL [Concomitant]
     Active Substance: DIPHENHYDRAMINE HYDROCHLORIDE
  13. CAPOTEN (UNITED STATES) [Concomitant]
     Dosage: 1/2 TABLET
     Route: 065
  14. ZITHROMAX [Concomitant]
     Active Substance: AZITHROMYCIN DIHYDRATE

REACTIONS (12)
  - Myocardial infarction [Unknown]
  - Cough [Unknown]
  - Pyrexia [Recovered/Resolved]
  - Haemoptysis [Unknown]
  - Pulmonary oedema [Unknown]
  - Dyspnoea [Unknown]
  - Pain in extremity [Recovered/Resolved]
  - Haemorrhage [Unknown]
  - Tachycardia [Unknown]
  - Hypotension [Unknown]
  - Pleural effusion [Unknown]
  - Confusional state [Unknown]
